FAERS Safety Report 8561711-X (Version None)
Quarter: 2012Q3

REPORT INFORMATION
  Report Type: 
  Country: None (occurrence: None)
  Receive Date: 20120802
  Receipt Date: 20120724
  Transmission Date: 20120928
  Serious: Yes (Other)
  Sender: FDA-Public Use
  Company Number: US-BAXTER-2012BAX011241

PATIENT
  Sex: Male

DRUGS (2)
  1. DIANEAL [Suspect]
     Indication: PERITONEAL DIALYSIS
     Route: 033
  2. DIANEAL [Suspect]
     Route: 033

REACTIONS (6)
  - CHEST PAIN [None]
  - FEELING ABNORMAL [None]
  - URINARY TRACT INFECTION [None]
  - HIP FRACTURE [None]
  - MUSCLE SPASMS [None]
  - DYSPNOEA [None]
